FAERS Safety Report 5594404-1 (Version None)
Quarter: 2008Q1

REPORT INFORMATION
  Report Type: 
  Country: None (occurrence: None)
  Receive Date: 20080115
  Receipt Date: 20080115
  Transmission Date: 20080703
  Serious: No
  Sender: FDA-Public Use
  Company Number: None

PATIENT
  Sex: Female
  Weight: 53.0709 kg

DRUGS (1)
  1. BUDEPRION XL   300 MG     ????? [Suspect]
     Indication: DEPRESSION
     Dosage: 1 TABLET -300 MG- DAILY PO (DURATION: ABOUT A MONTH)
     Route: 048
     Dates: start: 20070101, end: 20070201

REACTIONS (5)
  - ANXIETY [None]
  - DEPRESSED MOOD [None]
  - DRUG INEFFECTIVE [None]
  - PHARMACEUTICAL PRODUCT COMPLAINT [None]
  - TREMOR [None]
